FAERS Safety Report 7917821-0 (Version None)
Quarter: 2011Q4

REPORT INFORMATION
  Report Type: 
  Country: None (occurrence: None)
  Receive Date: 20111116
  Receipt Date: 20111102
  Transmission Date: 20120403
  Serious: Yes (Hospitalization)
  Sender: FDA-Public Use
  Company Number: PHFR2011GB006328

PATIENT
  Age: 89 Year
  Sex: Female
  Weight: 64.25 kg

DRUGS (4)
  1. CANDESARTAN CILEXETIL [Concomitant]
     Indication: HYPERTENSION
     Dosage: 2 MG, QD
     Route: 048
  2. IBANDRONATE SODIUM [Concomitant]
     Indication: OSTEOPOROSIS
     Dosage: 150 MG, QMO
     Route: 042
  3. DICLOFENAC SODIUM [Suspect]
     Indication: PAIN
     Dosage: 50 MG, TID
     Route: 048
     Dates: start: 20110131, end: 20110209
  4. ACETAMINOPHEN [Concomitant]
     Dosage: 1 G, QD4SDO
     Route: 048

REACTIONS (6)
  - MELAENA [None]
  - HAEMATEMESIS [None]
  - HAEMOGLOBIN DECREASED [None]
  - GASTRIC ULCER [None]
  - DUODENAL ULCER [None]
  - BACK PAIN [None]
